FAERS Safety Report 5940607-3 (Version None)
Quarter: 2008Q4

REPORT INFORMATION
  Report Type: 
  Country: None (occurrence: None)
  Receive Date: 20081103
  Receipt Date: 20081103
  Transmission Date: 20090506
  Serious: Yes (Other)
  Sender: FDA-Public Use
  Company Number: None

PATIENT
  Sex: Female
  Weight: 96.1626 kg

DRUGS (2)
  1. SERTRALINE [Suspect]
     Indication: DEPRESSION
     Dosage: 50MG DAILY PO
     Route: 048
     Dates: start: 20080927
  2. CYMBALTA [Suspect]
     Indication: DEPRESSION
     Dosage: 30 DAILY PO
     Route: 048
     Dates: start: 20081001

REACTIONS (4)
  - ANORGASMIA [None]
  - DIZZINESS [None]
  - LOSS OF LIBIDO [None]
  - NAUSEA [None]
